FAERS Safety Report 23804087 (Version 1)
Quarter: 2024Q2

REPORT INFORMATION
  Report Type: Spontaneous
  Country: US (occurrence: None)
  Receive Date: 20240430
  Receipt Date: 20240430
  Transmission Date: 20240717
  Serious: Yes (Hospitalization)
  Sender: FDA-Public Use
  Company Number: None

PATIENT
  Age: 75 Year
  Sex: Female

DRUGS (2)
  1. PREGABALIN [Suspect]
     Active Substance: PREGABALIN
     Indication: Neuralgia
     Dates: start: 20240401
  2. BACLOFEN [Suspect]
     Active Substance: BACLOFEN
     Indication: Muscle spasms
     Dates: start: 20240401

REACTIONS (4)
  - Encephalopathy [None]
  - Mental status changes [None]
  - Acute kidney injury [None]
  - Acute kidney injury [None]

NARRATIVE: CASE EVENT DATE: 20240409
